FAERS Safety Report 20375274 (Version 1)
Quarter: 2022Q1

REPORT INFORMATION
  Report Type: Spontaneous
  Country: US (occurrence: None)
  Receive Date: 20220124
  Receipt Date: 20220124
  Transmission Date: 20220423
  Serious: No
  Sender: FDA-Public Use
  Company Number: None

PATIENT
  Age: 31 Year
  Sex: Male
  Weight: 110.25 kg

DRUGS (1)
  1. PREDNISONE [Suspect]
     Active Substance: PREDNISONE
     Indication: Dyspnoea
     Dates: start: 20220117, end: 20220123

REACTIONS (5)
  - Anxiety [None]
  - Dizziness [None]
  - Muscular weakness [None]
  - Insomnia [None]
  - Daydreaming [None]

NARRATIVE: CASE EVENT DATE: 20220120
